FAERS Safety Report 13995480 (Version 2)
Quarter: 2017Q3

REPORT INFORMATION
  Report Type: Report from Study
  Country: US (occurrence: US)
  Receive Date: 20170921
  Receipt Date: 20170925
  Transmission Date: 20171128
  Serious: Yes (Hospitalization, Other)
  Sender: FDA-Public Use
  Company Number: US-ROCHE-1994275

PATIENT
  Age: 76 Year
  Sex: Male
  Weight: 109.5 kg

DRUGS (16)
  1. ROCEPHIN [Concomitant]
     Active Substance: CEFTRIAXONE SODIUM
     Route: 042
  2. GEMFIBROZIL. [Suspect]
     Active Substance: GEMFIBROZIL
     Indication: PRODUCT USED FOR UNKNOWN INDICATION
     Route: 048
  3. LOPRESSOR [Concomitant]
     Active Substance: METOPROLOL TARTRATE
     Route: 048
  4. RITUXIMAB. [Suspect]
     Active Substance: RITUXIMAB
     Indication: CHRONIC LYMPHOCYTIC LEUKAEMIA
     Dosage: DOSE: 895 MG?50 MG/HR INCREASE BY 100 MG/HR AT 30 MINUTES INTERVALS TO MAXIMUM OF 400 MG/HR EVERY 21
     Route: 042
     Dates: start: 20101213
  5. PENTOSTATIN. [Suspect]
     Active Substance: PENTOSTATIN
     Indication: CHRONIC LYMPHOCYTIC LEUKAEMIA
     Dosage: DOSE: 4.8 MG?IN 200 ML OF NS OVER 30 MINUTES EVERY 21 DAYS.
     Route: 042
     Dates: start: 20101213
  6. PEGFILGRASTIM [Suspect]
     Active Substance: PEGFILGRASTIM
     Indication: CHRONIC LYMPHOCYTIC LEUKAEMIA
     Dosage: DAY 2 AFTER TREATMENT EVERY 21 DAYS
     Route: 058
  7. DIGOXIN. [Suspect]
     Active Substance: DIGOXIN
     Indication: PRODUCT USED FOR UNKNOWN INDICATION
     Route: 048
  8. AZITHROMYCIN ANHYDROUS. [Concomitant]
     Active Substance: AZITHROMYCIN ANHYDROUS
     Route: 042
  9. LASIX [Concomitant]
     Active Substance: FUROSEMIDE
     Route: 042
  10. ALBUTEROL. [Concomitant]
     Active Substance: ALBUTEROL
  11. BEVACIZUMAB. [Suspect]
     Active Substance: BEVACIZUMAB
     Indication: CHRONIC LYMPHOCYTIC LEUKAEMIA
     Dosage: DOSE: 1620 MG
     Route: 042
     Dates: start: 20101213
  12. COZAAR [Suspect]
     Active Substance: LOSARTAN POTASSIUM
     Indication: PRODUCT USED FOR UNKNOWN INDICATION
     Route: 048
  13. VALTREX [Concomitant]
     Active Substance: VALACYCLOVIR HYDROCHLORIDE
     Route: 048
  14. CYCLOPHOSPHAMIDE. [Suspect]
     Active Substance: CYCLOPHOSPHAMIDE
     Indication: CHRONIC LYMPHOCYTIC LEUKAEMIA
     Dosage: DOSE: 1435 MG?IN 250 ML OF NS OVER 30 MINUTES EVERY 21 DAYS
     Route: 042
     Dates: start: 20101213
  15. ZIAC (BISOPROLOL FUMARATE/HYDROCHLOROTHIAZIDE) [Concomitant]
     Dosage: DOSE: 5/6.25
     Route: 065
  16. BACTRIM [Concomitant]
     Active Substance: SULFAMETHOXAZOLE\TRIMETHOPRIM
     Dosage: DOSE: 160-800 MG
     Route: 048

REACTIONS (8)
  - Myocardial infarction [Unknown]
  - Myocarditis [Unknown]
  - Myocardial ischaemia [Unknown]
  - Dyspnoea [Unknown]
  - Hypertension [Unknown]
  - Left ventricular dysfunction [Unknown]
  - Pulmonary hypertension [Unknown]
  - Cardiac failure congestive [Unknown]
